FAERS Safety Report 6694091-5 (Version None)
Quarter: 2010Q2

REPORT INFORMATION
  Report Type: 
  Country: None (occurrence: None)
  Receive Date: 20100423
  Receipt Date: 20100414
  Transmission Date: 20101027
  Serious: Yes (Death, Life-Threatening, Hospitalization)
  Sender: FDA-Public Use
  Company Number: JP-MPIJNJ-2008_02260

PATIENT

DRUGS (1)
  1. VELCADE [Suspect]
     Indication: MULTIPLE MYELOMA
     Dosage: 1.3 MG/M2, UNK
     Route: 042
     Dates: start: 20080531, end: 20080610

REACTIONS (4)
  - HYPOTENSION [None]
  - ILEUS [None]
  - LUNG DISORDER [None]
  - NEUROPATHY PERIPHERAL [None]
